FAERS Safety Report 23256406 (Version 1)
Quarter: 2023Q4

REPORT INFORMATION
  Report Type: Other
  Country: US (occurrence: None)
  Receive Date: 20231204
  Receipt Date: 20231204
  Transmission Date: 20240109
  Serious: Yes (Other)
  Sender: FDA-Public Use
  Company Number: US-ROCHE-3436624

PATIENT
  Age: 31 Year
  Sex: Female

DRUGS (1)
  1. RITUXAN [Suspect]
     Active Substance: RITUXIMAB
     Indication: Relapsing-remitting multiple sclerosis
     Route: 065

REACTIONS (7)
  - Off label use [Unknown]
  - Multiple sclerosis relapse [Unknown]
  - Rheumatoid arthritis [Unknown]
  - Anxiety [Unknown]
  - Migraine [Unknown]
  - Neoplasm [Unknown]
  - Depression [Unknown]

NARRATIVE: CASE EVENT DATE: 20231006
